FAERS Safety Report 9006220 (Version 1)
Quarter: 2013Q1

REPORT INFORMATION
  Report Type: Spontaneous
  Country: US (occurrence: US)
  Receive Date: 20130110
  Receipt Date: 20130110
  Transmission Date: 20140127
  Serious: Yes (Other)
  Sender: FDA-Public Use
  Company Number: US-009507513-0907USA03596

PATIENT
  Age: 8 Year
  Sex: Male
  Weight: 31 kg

DRUGS (8)
  1. SINGULAIR [Suspect]
     Indication: RHINITIS ALLERGIC
     Dosage: 5 MG, QPM
     Route: 048
     Dates: start: 20061208, end: 20080522
  2. SINGULAIR [Suspect]
     Indication: ASTHMA
  3. ADVAIR [Concomitant]
     Route: 055
     Dates: start: 20080522
  4. CLONIDINE [Concomitant]
     Dosage: ONE AND 1/2 TABLET
     Dates: start: 20080821
  5. CONCERTA [Concomitant]
     Dosage: 36 MG, UNK
     Dates: start: 20071205
  6. NASONEX [Concomitant]
     Dates: start: 20061101
  7. XOPENEX HFA [Concomitant]
     Dates: start: 20061101
  8. ZYRTEC [Concomitant]
     Dosage: 10 MG, UNK
     Dates: start: 20061101

REACTIONS (8)
  - Attention deficit/hyperactivity disorder [Recovering/Resolving]
  - Aggression [Recovering/Resolving]
  - Anger [Recovering/Resolving]
  - Crying [Recovering/Resolving]
  - Depression [Recovering/Resolving]
  - Poor quality sleep [Recovering/Resolving]
  - Self injurious behaviour [Recovering/Resolving]
  - Violence-related symptom [Recovering/Resolving]
